FAERS Safety Report 15059473 (Version 2)
Quarter: 2018Q2

REPORT INFORMATION
  Report Type: Spontaneous
  Country: PL (occurrence: PL)
  Receive Date: 20180625
  Receipt Date: 20180625
  Transmission Date: 20180711
  Serious: Yes (Other)
  Sender: FDA-Public Use
  Company Number: PHHY2018PL021910

PATIENT
  Age: 74 Year
  Sex: Female

DRUGS (22)
  1. AMLOZEK [Concomitant]
     Active Substance: AMLODIPINE BESYLATE
     Indication: PRODUCT USED FOR UNKNOWN INDICATION
     Dosage: 10 MG, QD
     Route: 065
  2. ZOCOR [Concomitant]
     Active Substance: SIMVASTATIN
     Indication: PRODUCT USED FOR UNKNOWN INDICATION
     Dosage: 20 MG, QD
     Route: 065
  3. LANTUS [Concomitant]
     Active Substance: INSULIN GLARGINE
     Dosage: 16 U, QD
     Route: 065
  4. SIGNIFOR LAR [Suspect]
     Active Substance: PASIREOTIDE
     Indication: ACROMEGALY
     Dosage: 40 MG, UNK
     Route: 065
     Dates: start: 20151105
  5. LANTUS [Concomitant]
     Active Substance: INSULIN GLARGINE
     Dosage: 12 U, QD
     Route: 065
  6. LANTUS [Concomitant]
     Active Substance: INSULIN GLARGINE
     Dosage: 14 U, QD
     Route: 065
  7. GLUCOPHAGE [Concomitant]
     Active Substance: METFORMIN HYDROCHLORIDE
     Indication: DIABETES MELLITUS
     Dosage: 1 DF, UNK
     Route: 065
  8. DIAPREL [Concomitant]
     Active Substance: GLICLAZIDE
     Indication: DIABETES MELLITUS
     Dosage: 2 DF, BID
     Route: 065
  9. METFORMAX [Concomitant]
     Active Substance: METFORMIN HYDROCHLORIDE
     Indication: DIABETES MELLITUS
     Dosage: 500 MG, TID
     Route: 065
  10. CO VALSTAR [Concomitant]
     Indication: PRODUCT USED FOR UNKNOWN INDICATION
     Dosage: 80MG+12.5MG, QD
     Route: 065
  11. METFORMAX [Concomitant]
     Active Substance: METFORMIN HYDROCHLORIDE
     Dosage: 2000 MG, PER DAY
     Route: 065
     Dates: start: 20150324
  12. LANTUS [Concomitant]
     Active Substance: INSULIN GLARGINE
     Dosage: 8 U AT 7 PM AND 6 U AT 10 PM
     Route: 065
  13. LANTUS [Concomitant]
     Active Substance: INSULIN GLARGINE
     Dosage: 7 U, BID
     Route: 065
     Dates: start: 20160225
  14. IPP [Suspect]
     Active Substance: PANTOPRAZOLE SODIUM
     Indication: PRODUCT USED FOR UNKNOWN INDICATION
     Dosage: 20 MG, UNK
     Route: 065
  15. VIVACOR [Concomitant]
     Active Substance: BISOPROLOL FUMARATE
     Indication: PRODUCT USED FOR UNKNOWN INDICATION
     Dosage: 12.5 MG, BID
     Route: 065
  16. EUTHYROX [Concomitant]
     Active Substance: LEVOTHYROXINE SODIUM
     Indication: PRODUCT USED FOR UNKNOWN INDICATION
     Dosage: 1 X1/2 TAB FOR 2 WEEKS THEN 1X1 TAB
     Route: 065
  17. VIGANTOL [Concomitant]
     Active Substance: CHOLECALCIFEROL
     Indication: PRODUCT USED FOR UNKNOWN INDICATION
     Dosage: 1 X 6 DROPS
     Route: 065
  18. METFORMAX [Concomitant]
     Active Substance: METFORMIN HYDROCHLORIDE
     Dosage: 1000MG, PER DAY
     Route: 065
  19. ACARD [Concomitant]
     Active Substance: ASPIRIN
     Indication: PRODUCT USED FOR UNKNOWN INDICATION
     Dosage: 75 MG, QD
  20. LANTUS [Concomitant]
     Active Substance: INSULIN GLARGINE
     Indication: DIABETES MELLITUS
     Dosage: 10 U, QD
     Route: 065
     Dates: start: 20151203, end: 20160223
  21. APIDRA [Concomitant]
     Active Substance: INSULIN GLULISINE
     Indication: DIABETES MELLITUS
     Dosage: 4 U, TID
     Route: 065
  22. NOVORAPID [Concomitant]
     Active Substance: INSULIN ASPART
     Indication: DIABETES MELLITUS
     Dosage: 4-5U- 5U
     Route: 065

REACTIONS (6)
  - Blood glucose abnormal [Unknown]
  - Glycosylated haemoglobin decreased [Unknown]
  - Blood creatinine increased [Unknown]
  - Renal function test abnormal [Unknown]
  - Insulin-like growth factor increased [Unknown]
  - Remission not achieved [Unknown]
